FAERS Safety Report 8717712 (Version 2)
Quarter: 2013Q3

REPORT INFORMATION
  Report Type: Report from Study
  Country: CA (occurrence: CA)
  Receive Date: 20120810
  Receipt Date: 20130702
  Transmission Date: 20140515
  Serious: Yes (Hospitalization, Other)
  Sender: FDA-Public Use
  Company Number: CA-ELI_LILLY_AND_COMPANY-CA201208001146

PATIENT
  Age: 91 Year
  Sex: Female
  Weight: 43.08 kg

DRUGS (9)
  1. TERIPARATIDE [Suspect]
     Indication: OSTEOPOROSIS
     Dosage: 20 UG, QD
     Route: 058
     Dates: start: 20110929, end: 20120726
  2. TERIPARATIDE [Suspect]
     Dosage: 20 UG, QD
     Route: 065
     Dates: start: 20120802
  3. LYRICA [Concomitant]
  4. TYLENOL                                 /SCH/ [Concomitant]
  5. FUROSEMIDE [Concomitant]
  6. VITAMIN D [Concomitant]
  7. VITAMIN C [Concomitant]
  8. CALCIUM [Concomitant]
  9. MULTIVITAMIN [Concomitant]

REACTIONS (5)
  - Cellulitis [Recovered/Resolved]
  - Fall [Recovered/Resolved]
  - Limb injury [Recovered/Resolved]
  - Wound [Recovered/Resolved]
  - Gait disturbance [Recovered/Resolved]
